FAERS Safety Report 23821473 (Version 1)
Quarter: 2024Q2

REPORT INFORMATION
  Report Type: Spontaneous
  Country: FR (occurrence: FR)
  Receive Date: 20240506
  Receipt Date: 20240506
  Transmission Date: 20240715
  Serious: Yes (Life-Threatening, Hospitalization)
  Sender: FDA-Public Use
  Company Number: FR-ACRAF SpA-2024-034261

PATIENT

DRUGS (2)
  1. XCOPRI [Suspect]
     Active Substance: CENOBAMATE
     Indication: Epilepsy
     Dosage: 150 MG IN THE EVENING
     Route: 048
  2. LAMOTRIGINE [Concomitant]
     Active Substance: LAMOTRIGINE
     Indication: Product used for unknown indication
     Dosage: 200 MG IN THE MORNING, AND IN THE EVENING
     Route: 065

REACTIONS (3)
  - Drug ineffective [Unknown]
  - Seizure [Unknown]
  - Endotracheal intubation [Unknown]

NARRATIVE: CASE EVENT DATE: 20240423
